FAERS Safety Report 7452165 (Version 7)
Quarter: 2012Q4

REPORT INFORMATION
  Report Type: Report from Study
  Country: JP (occurrence: JP)
  Receive Date: 20100702
  Receipt Date: 20121114
  Transmission Date: 20130627
  Serious: Yes (Hospitalization, Disabling, Other)
  Sender: FDA-Public Use
  Company Number: JP-BRISTOL-MYERS SQUIBB COMPANY-15169311

PATIENT
  Age: 48 Year
  Sex: Male
  Weight: 84 kg

DRUGS (6)
  1. BARACLUDE [Suspect]
     Indication: CHRONIC HEPATITIS B
     Route: 048
     Dates: start: 20070507
  2. ADEFOVIR DIPIVOXIL [Concomitant]
     Indication: HEPATITIS B
     Dosage: Formulation : Tablet.
     Route: 048
     Dates: start: 20060412, end: 20100420
  3. LASIX [Concomitant]
     Indication: ASCITES
     Route: 048
     Dates: start: 20060412, end: 20100420
  4. ALDACTONE-A [Concomitant]
     Indication: ASCITES
     Route: 048
     Dates: start: 20060412, end: 20100420
  5. OMEPRAL [Concomitant]
     Indication: VARICES OESOPHAGEAL
     Dosage: Formulation : Tablet.
     Route: 048
     Dates: start: 20060816, end: 20100420
  6. AMINOLEBAN [Concomitant]
     Indication: HYPERAMMONAEMIA
     Dosage: Aminoleban EN (Enteral nutrient for hepatic failure).
     Route: 048
     Dates: start: 20060816, end: 20100420

REACTIONS (7)
  - Hepatorenal syndrome [Not Recovered/Not Resolved]
  - Renal impairment [Not Recovered/Not Resolved]
  - Hyperlactacidaemia [Unknown]
  - Nephrotic syndrome [Not Recovered/Not Resolved]
  - Blood albumin decreased [Not Recovered/Not Resolved]
  - White blood cell count decreased [Recovering/Resolving]
  - Neutrophil count decreased [Recovering/Resolving]
